FAERS Safety Report 13668877 (Version 1)
Quarter: 2017Q2

REPORT INFORMATION
  Report Type: Spontaneous
  Country: US (occurrence: US)
  Receive Date: 20170620
  Receipt Date: 20170620
  Transmission Date: 20170830
  Serious: No
  Sender: FDA-Public Use
  Company Number: None

PATIENT
  Age: 82 Year
  Sex: Male

DRUGS (1)
  1. PROLIA [Suspect]
     Active Substance: DENOSUMAB
     Indication: PROSTATE CANCER
     Dosage: 60 MG EVERY 6 MONTHS SUBCUTANEOUSLY ADMINISTERED IN MDO
     Route: 058
     Dates: start: 201612

REACTIONS (1)
  - Metastases to bone [None]
